FAERS Safety Report 6897882-0 (Version None)
Quarter: 2010Q3

REPORT INFORMATION
  Report Type: 
  Country: None (occurrence: None)
  Receive Date: 20100802
  Receipt Date: 20070727
  Transmission Date: 20110219
  Serious: No
  Sender: FDA-Public Use
  Company Number: US-PFIZER INC-2007063055

PATIENT
  Sex: Female
  Weight: 60.5 kg

DRUGS (4)
  1. LYRICA [Suspect]
     Indication: NEURALGIA
     Dates: start: 20070718
  2. LYRICA [Suspect]
     Indication: MULTIPLE SCLEROSIS
  3. TOPAMAX [Concomitant]
     Indication: HYPERTHYROIDISM
  4. VICODIN [Concomitant]

REACTIONS (1)
  - WEIGHT INCREASED [None]
